FAERS Safety Report 15762348 (Version 1)
Quarter: 2018Q4

REPORT INFORMATION
  Report Type: Spontaneous
  Country: GB (occurrence: GB)
  Receive Date: 20181226
  Receipt Date: 20181226
  Transmission Date: 20190205
  Serious: Yes (Disabling, Other)
  Sender: FDA-Public Use
  Company Number: GB-009507513-1812GBR008799

PATIENT
  Age: 60 Year
  Sex: Female
  Weight: 57.15 kg

DRUGS (12)
  1. OMEPRAZOLE. [Concomitant]
     Active Substance: OMEPRAZOLE
     Dosage: STOPPED AT LEAST A WEEK PRIOR TO OPERATION
  2. SUGAMMADEX SODIUM [Suspect]
     Active Substance: SUGAMMADEX SODIUM
     Indication: CEREBRAL ENDOVASCULAR ANEURYSM REPAIR
     Dosage: 200 MILLIGRAM
     Route: 051
     Dates: start: 20180530, end: 20180530
  3. UBIDECARENONE [Concomitant]
     Active Substance: UBIDECARENONE
  4. HORMONES (UNSPECIFIED) [Concomitant]
     Active Substance: UNSPECIFIED INGREDIENT
  5. VITAMIN D [Concomitant]
     Active Substance: CHOLECALCIFEROL
     Dosage: STOPPED PRIOR TO OPERATION
  6. VAGIFEM [Concomitant]
     Active Substance: ESTRADIOL
  7. TURMERIC [Concomitant]
     Active Substance: HERBALS\TURMERIC
     Dosage: STOPPED PRIOR TO OPERATION
  8. HEMP [Concomitant]
     Active Substance: HEMP
     Dosage: STOPPED PRIOR TO OPERATION
  9. KLIOVANCE [Concomitant]
     Active Substance: ESTRADIOL\NORETHINDRONE ACETATE
  10. VECURONIUM BROMIDE. [Suspect]
     Active Substance: VECURONIUM BROMIDE
     Indication: CEREBRAL ENDOVASCULAR ANEURYSM REPAIR
     Dosage: 8 MILLIGRAM
     Route: 051
     Dates: start: 20180530, end: 20180530
  11. CHROMIUM (UNSPECIFIED) [Concomitant]
     Active Substance: CHROMIC CHLORIDE\CHROMIUM
  12. CITALOPRAM [Concomitant]
     Active Substance: CITALOPRAM HYDROBROMIDE

REACTIONS (3)
  - Muscular weakness [Not Recovered/Not Resolved]
  - Pain in extremity [Not Recovered/Not Resolved]
  - Hypoaesthesia [Unknown]

NARRATIVE: CASE EVENT DATE: 20180531
